FAERS Safety Report 4724391-7 (Version None)
Quarter: 2005Q3

REPORT INFORMATION
  Report Type: 
  Country: None (occurrence: None)
  Receive Date: 20050720
  Receipt Date: 20050720
  Transmission Date: 20060218
  Serious: Yes (Hospitalization)
  Sender: FDA-Public Use
  Company Number: None

PATIENT
  Age: 71 Year
  Sex: Male
  Weight: 81.6475 kg

DRUGS (2)
  1. ESKALITH [Suspect]
     Indication: DEMENTIA
  2. ESKALITH [Suspect]
     Indication: SCHIZOPHRENIA

REACTIONS (2)
  - ANTIPSYCHOTIC DRUG LEVEL INCREASED [None]
  - MENTAL STATUS CHANGES [None]
